FAERS Safety Report 4877235-7 (Version None)
Quarter: 2006Q1

REPORT INFORMATION
  Report Type: 
  Country: None (occurrence: None)
  Receive Date: 20060111
  Receipt Date: 20060102
  Transmission Date: 20060701
  Serious: Yes (Hospitalization, Disabling, Other)
  Sender: FDA-Public Use
  Company Number: FR-JNJFOC-20051203882

PATIENT
  Age: 76 Year
  Sex: Female
  Weight: 50 kg

DRUGS (9)
  1. REMICADE [Suspect]
     Route: 042
  2. REMICADE [Suspect]
     Route: 042
  3. REMICADE [Suspect]
     Indication: RHEUMATOID ARTHRITIS
     Route: 042
  4. OROCAL D3 [Concomitant]
     Route: 048
     Dates: start: 20040101
  5. OROCAL D3 [Concomitant]
     Indication: OSTEOPOROSIS
     Route: 048
     Dates: start: 20040101
  6. CORTANCYL [Concomitant]
     Indication: RHEUMATOID ARTHRITIS
     Route: 048
     Dates: start: 20040101
  7. TAHOR [Concomitant]
     Route: 048
     Dates: start: 20030101
  8. TAREG [Concomitant]
     Indication: HYPERTENSION
     Route: 048
     Dates: start: 20030101
  9. TEMESTA [Concomitant]
     Indication: INSOMNIA
     Route: 048
     Dates: start: 20030101

REACTIONS (3)
  - HERPES ZOSTER [None]
  - POLYNEUROPATHY [None]
  - RADICULOPATHY [None]
